FAERS Safety Report 4928625-5 (Version None)
Quarter: 2006Q1

REPORT INFORMATION
  Report Type: 
  Country: None (occurrence: None)
  Receive Date: 20060301
  Receipt Date: 20060220
  Transmission Date: 20060701
  Serious: Yes (Life-Threatening)
  Sender: FDA-Public Use
  Company Number: NO-JNJFOC-20050205486

PATIENT
  Sex: Male

DRUGS (11)
  1. REMICADE [Suspect]
     Route: 042
     Dates: start: 20030528, end: 20050126
  2. REMICADE [Suspect]
     Route: 042
     Dates: start: 20030528, end: 20050126
  3. ALBYL-E [Concomitant]
     Route: 048
  4. ALBYL-E [Concomitant]
     Route: 048
  5. NEXIUM [Concomitant]
     Route: 048
  6. FOLIC ACID [Concomitant]
     Indication: PROPHYLAXIS
     Route: 048
     Dates: start: 20041108
  7. ZOCOR [Concomitant]
     Route: 048
  8. NORVASC [Concomitant]
     Indication: HYPERTENSION
     Route: 048
  9. METHOTREXATE [Concomitant]
     Route: 048
     Dates: start: 20041108
  10. RELIFEX [Concomitant]
     Route: 048
  11. ALLOPUR [Concomitant]
     Indication: GOUT
     Route: 048

REACTIONS (7)
  - ANAPHYLACTIC REACTION [None]
  - BLOOD PRESSURE DECREASED [None]
  - CHILLS [None]
  - MUSCLE SPASMS [None]
  - NAUSEA [None]
  - PALLOR [None]
  - VOMITING [None]
